FAERS Safety Report 7809257-8 (Version None)
Quarter: 2011Q4

REPORT INFORMATION
  Report Type: 
  Country: None (occurrence: None)
  Receive Date: 20111012
  Receipt Date: 20111004
  Transmission Date: 20120403
  Serious: Yes (Hospitalization)
  Sender: FDA-Public Use
  Company Number: US-NOVOPROD-334303

PATIENT

DRUGS (8)
  1. CASODEX 50 [Concomitant]
     Indication: PROSTATE CANCER
  2. LUPRON DEPOT [Concomitant]
     Indication: PROSTATE CANCER
  3. VICTOZA [Suspect]
     Indication: TYPE 2 DIABETES MELLITUS
     Dosage: 0.6 MG, QD
     Route: 058
     Dates: start: 20110218
  4. MICARDIS [Concomitant]
     Indication: HYPERTENSION
  5. VICTOZA [Suspect]
     Dosage: 1.8 MG, QD
     Dates: end: 20110401
  6. TERAZOSIN HCL [Concomitant]
     Indication: HYPERTENSION
  7. METFORMIN HYDROCHLORIDE [Concomitant]
     Indication: TYPE 2 DIABETES MELLITUS
  8. PLAVIX [Concomitant]
     Indication: PRODUCT USED FOR UNKNOWN INDICATION

REACTIONS (1)
  - PANCREATITIS ACUTE [None]
